FAERS Safety Report 9045803 (Version 1)
Quarter: 2013Q1

REPORT INFORMATION
  Report Type: Report from Study
  Country: US (occurrence: US)
  Receive Date: 20130201
  Receipt Date: 20130201
  Transmission Date: 20140127
  Serious: No
  Sender: FDA-Public Use
  Company Number: US-ABBOTT-12P-163-0998683-00

PATIENT
  Age: 39 Year
  Sex: Female

DRUGS (12)
  1. HUMIRA [Suspect]
     Indication: CROHN^S DISEASE
     Dosage: 160 MG DAY 1 LOADING DOSE
     Route: 058
     Dates: start: 20121018
  2. HUMIRA [Suspect]
     Route: 058
  3. PREDNISONE [Concomitant]
     Indication: PRODUCT USED FOR UNKNOWN INDICATION
  4. PREDNISONE [Concomitant]
  5. AZATHIOPRINE [Concomitant]
     Indication: PRODUCT USED FOR UNKNOWN INDICATION
     Dosage: 2.5 TABLETS EVERY AM
  6. PERCOCET [Concomitant]
     Indication: PRODUCT USED FOR UNKNOWN INDICATION
     Dosage: 10/325 MG PRN (USED EVERYDAY)
  7. LORAZEPAM [Concomitant]
     Indication: ANXIETY
  8. SOMA [Concomitant]
     Indication: MUSCULOSKELETAL DISCOMFORT
  9. NEURONTIN [Concomitant]
     Indication: BACK PAIN
  10. NEURONTIN [Concomitant]
     Indication: NECK PAIN
  11. BACLOFEN [Concomitant]
     Indication: BACK PAIN
  12. BACLOFEN [Concomitant]
     Indication: NECK PAIN

REACTIONS (5)
  - Abdominal pain upper [Not Recovered/Not Resolved]
  - Nausea [Unknown]
  - Abdominal distension [Unknown]
  - Neck pain [Unknown]
  - Headache [Not Recovered/Not Resolved]
